FAERS Safety Report 17478346 (Version 2)
Quarter: 2020Q1

REPORT INFORMATION
  Report Type: Report from Study
  Country: GB (occurrence: GB)
  Receive Date: 20200228
  Receipt Date: 20200318
  Transmission Date: 20200409
  Serious: Yes (Hospitalization, Other)
  Sender: FDA-Public Use
  Company Number: GB-JNJFOC-20191213537

PATIENT
  Sex: Male

DRUGS (1)
  1. STELARA [Suspect]
     Active Substance: USTEKINUMAB
     Indication: PSORIATIC ARTHROPATHY
     Route: 058
     Dates: start: 20160425

REACTIONS (7)
  - Toe amputation [Unknown]
  - Psoriasis [Unknown]
  - Localised infection [Unknown]
  - Lower respiratory tract infection [Unknown]
  - Cellulitis [Unknown]
  - Psoriatic arthropathy [Unknown]
  - Post procedural infection [Unknown]

NARRATIVE: CASE EVENT DATE: 2018
